FAERS Safety Report 7810118-9 (Version None)
Quarter: 2011Q4

REPORT INFORMATION
  Report Type: 
  Country: None (occurrence: None)
  Receive Date: 20111012
  Receipt Date: 20111005
  Transmission Date: 20120403
  Serious: Yes (Hospitalization, Other)
  Sender: FDA-Public Use
  Company Number: US-AMGEN-USANI2011051520

PATIENT
  Age: 45 Year
  Sex: Male
  Weight: 65.7 kg

DRUGS (9)
  1. DECITABINE [Concomitant]
     Indication: COLON CANCER METASTATIC
     Dosage: 45 MG/M2, UNK
     Dates: start: 20110729
  2. TRAZODONE HYDROCHLORIDE [Concomitant]
     Indication: INSOMNIA
     Dosage: 50 MG, PRN
     Route: 048
  3. RITALIN [Concomitant]
     Dosage: 20 MG, BID
     Route: 048
  4. ACTIQ [Concomitant]
     Dosage: 600 MUG, UNK
  5. AMBIEN [Concomitant]
     Indication: INSOMNIA
     Dosage: 5 MG, PRN
     Route: 048
  6. CYMBALTA [Concomitant]
     Dosage: 60 MG, UNK
  7. SENNA-S [Concomitant]
     Dosage: 8.6 MG, BID
  8. PANITUMUMAB [Suspect]
     Indication: COLON CANCER METASTATIC
     Dosage: 6 MG/KG, UNK
     Dates: start: 20110805
  9. SOLUTIONS FOR PARENTERAL NUTRITION [Concomitant]

REACTIONS (8)
  - INFECTION [None]
  - ELECTROLYTE IMBALANCE [None]
  - SYSTEMIC INFLAMMATORY RESPONSE SYNDROME [None]
  - HYPOTENSION [None]
  - ANAEMIA [None]
  - PYREXIA [None]
  - CONFUSIONAL STATE [None]
  - OEDEMA PERIPHERAL [None]
